FAERS Safety Report 9450695 (Version 1)
Quarter: 2013Q3

REPORT INFORMATION
  Report Type: Spontaneous
  Country: IT (occurrence: None)
  Receive Date: 20130807
  Receipt Date: 20130807
  Transmission Date: 20140515
  Serious: Yes (Hospitalization)
  Sender: FDA-Public Use
  Company Number: GER/ITL/13/0033901

PATIENT
  Age: 53 Year
  Sex: Female

DRUGS (4)
  1. CLOPIDOGREL (CLOPIDOGREL) [Suspect]
     Dosage: 75 MG, 1 IN 1 D
     Dates: start: 2012, end: 2012
  2. ATORVASTATIN [Suspect]
     Indication: ACUTE CORONARY SYNDROME
     Dates: start: 2012, end: 2012
  3. PANTOPRAZOLE (PANTOPRAZOLE) [Suspect]
     Indication: ACUTE CORONARY SYNDROME
     Dates: start: 2012, end: 2012
  4. ACETYLSALICYLIC ACID (ACETYLSALICYLIC ACID) [Suspect]
     Indication: ACUTE CORONARY SYNDROME
     Dates: start: 2012, end: 2012

REACTIONS (5)
  - Hepatitis acute [None]
  - Asthenia [None]
  - Arthralgia [None]
  - Rash papular [None]
  - Chromaturia [None]
